FAERS Safety Report 21704671 (Version 1)
Quarter: 2022Q4

REPORT INFORMATION
  Report Type: Other
  Country: GB (occurrence: GB)
  Receive Date: 20221209
  Receipt Date: 20221209
  Transmission Date: 20230112
  Serious: Yes (Hospitalization)
  Sender: FDA-Public Use
  Company Number: None

PATIENT
  Age: 19 Year
  Sex: Male

DRUGS (8)
  1. IBUPROFEN [Suspect]
     Active Substance: IBUPROFEN
     Indication: Nasopharyngitis
     Dosage: UNK
     Route: 065
  2. IBUPROFEN [Suspect]
     Active Substance: IBUPROFEN
     Indication: Cough
  3. ACETAMINOPHEN [Suspect]
     Active Substance: ACETAMINOPHEN
     Indication: Nasopharyngitis
     Dosage: UNK
     Route: 065
  4. ACETAMINOPHEN [Suspect]
     Active Substance: ACETAMINOPHEN
     Indication: Cough
     Dosage: UNK
     Route: 065
  5. GUAIFENESIN [Suspect]
     Active Substance: GUAIFENESIN
     Indication: Cough
     Dosage: UNK
     Route: 065
  6. GUAIFENESIN [Suspect]
     Active Substance: GUAIFENESIN
     Indication: Nasopharyngitis
     Dosage: UNK
     Route: 065
  7. PHENYLEPHRINE HYDROCHLORIDE [Suspect]
     Active Substance: PHENYLEPHRINE HYDROCHLORIDE
     Indication: Nasopharyngitis
     Dosage: UNK
     Route: 065
  8. PHENYLEPHRINE HYDROCHLORIDE [Suspect]
     Active Substance: PHENYLEPHRINE HYDROCHLORIDE
     Indication: Cough
     Dosage: UNK
     Route: 065

REACTIONS (5)
  - Malaise [Unknown]
  - Gastric ulcer haemorrhage [Unknown]
  - Haematemesis [Unknown]
  - Haemoglobin decreased [Unknown]
  - Gastric ulcer [Unknown]

NARRATIVE: CASE EVENT DATE: 20221119
